FAERS Safety Report 25404282 (Version 1)
Quarter: 2025Q2

REPORT INFORMATION
  Report Type: Spontaneous
  Country: US (occurrence: US)
  Receive Date: 20250606
  Receipt Date: 20250606
  Transmission Date: 20250717
  Serious: No
  Sender: AUROBINDO
  Company Number: US-AUROBINDO-AUR-APL-2024-047129

PATIENT
  Age: 80 Year
  Sex: Male
  Weight: 113.39 kg

DRUGS (1)
  1. CIPROFLOXACIN [Suspect]
     Active Substance: CIPROFLOXACIN
     Indication: Sinusitis
     Dosage: UNK, TWO TIMES A DAY, COUPLE OF WEEKS AGO
     Route: 048
     Dates: start: 20240726

REACTIONS (3)
  - Tendon pain [Not Recovered/Not Resolved]
  - Foot deformity [Not Recovered/Not Resolved]
  - Condition aggravated [Not Recovered/Not Resolved]
